FAERS Safety Report 8961054 (Version 2)
Quarter: 2012Q4

REPORT INFORMATION
  Report Type: 
  Country: US (occurrence: US)
  Receive Date: 20121213
  Receipt Date: 20121218
  Transmission Date: 20130627
  Serious: Yes (Hospitalization, Other)
  Sender: FDA-Public Use
  Company Number: US-BAYER-2012-127802

PATIENT
  Sex: Female

DRUGS (1)
  1. MIRENA [Suspect]
     Indication: CONTRACEPTION
     Dosage: 20 mcg/24hr, CONT
     Route: 015
     Dates: start: 201111, end: 201208

REACTIONS (8)
  - Discomfort [None]
  - Abdominal pain [None]
  - Anger [None]
  - Genital haemorrhage [Recovered/Resolved]
  - Ovarian fibrosis [None]
  - Infection [None]
  - Pelvic inflammatory disease [None]
  - Vomiting [None]
